FAERS Safety Report 5483734-X (Version None)
Quarter: 2007Q4

REPORT INFORMATION
  Report Type: 
  Country: None (occurrence: None)
  Receive Date: 20071009
  Receipt Date: 20071009
  Transmission Date: 20080405
  Serious: Yes (Hospitalization)
  Sender: FDA-Public Use
  Company Number: None

PATIENT
  Sex: Male
  Weight: 92.5338 kg

DRUGS (10)
  1. IL-2 INTERLEUKIN-2 [Suspect]
     Dosage: 55.5 MU IV Q 8 HOURS
     Route: 042
     Dates: end: 20070927
  2. AVASTIN [Suspect]
     Dosage: 940 MG IV Q 2 WEEKS
     Route: 042
     Dates: end: 20070925
  3. CADUET [Concomitant]
  4. AMMBIEN [Concomitant]
  5. OXYCONTIN [Concomitant]
  6. LORTAB [Concomitant]
  7. ATIVAN [Concomitant]
  8. VICODIN [Concomitant]
  9. ZOLOFT [Concomitant]
  10. TIGAN [Concomitant]

REACTIONS (1)
  - PANCREATITIS ACUTE [None]
